FAERS Safety Report 14496958 (Version 2)
Quarter: 2018Q2

REPORT INFORMATION
  Report Type: Spontaneous
  Country: JP (occurrence: JP)
  Receive Date: 20180207
  Receipt Date: 20180409
  Transmission Date: 20180711
  Serious: Yes (Death, Hospitalization, Other)
  Sender: FDA-Public Use
  Company Number: JP-BRISTOL-MYERS SQUIBB COMPANY-BMS-2017-103783

PATIENT
  Age: 53 Year
  Sex: Female

DRUGS (1)
  1. OPDIVO [Suspect]
     Active Substance: NIVOLUMAB
     Indication: NON-SMALL CELL LUNG CANCER RECURRENT
     Dosage: 3 MG/KG, UNK
     Route: 041
     Dates: start: 20171102

REACTIONS (5)
  - Renal impairment [Fatal]
  - Hepatic function abnormal [Fatal]
  - Malignant neoplasm progression [Fatal]
  - Multiple organ dysfunction syndrome [Unknown]
  - Hyperglycaemia [Fatal]

NARRATIVE: CASE EVENT DATE: 201711
